FAERS Safety Report 6361775-8 (Version None)
Quarter: 2009Q3

REPORT INFORMATION
  Report Type: 
  Country: None (occurrence: None)
  Receive Date: 20090918
  Receipt Date: 20081022
  Transmission Date: 20100115
  Serious: No
  Sender: FDA-Public Use
  Company Number: US-TYCO HEALTHCARE/MALLINCKRODT-T200801729

PATIENT

DRUGS (2)
  1. MD-GASTROVIEW [Suspect]
     Indication: COMPUTERISED TOMOGRAM ABDOMEN
     Dosage: 25-30 ML, SINGLE
     Route: 042
     Dates: start: 20081021, end: 20081021
  2. ANTIBIOTICS [Concomitant]
     Indication: SEPSIS

REACTIONS (1)
  - INCORRECT ROUTE OF DRUG ADMINISTRATION [None]
